FAERS Safety Report 5327994-4 (Version None)
Quarter: 2007Q2

REPORT INFORMATION
  Report Type: 
  Country: None (occurrence: None)
  Receive Date: 20070517
  Receipt Date: 20070517
  Transmission Date: 20071010
  Serious: Yes (Other)
  Sender: FDA-Public Use
  Company Number: US-GENENTECH-230370

PATIENT
  Sex: Female

DRUGS (1)
  1. AVASTIN [Suspect]
     Indication: MACULAR OEDEMA
     Route: 031

REACTIONS (3)
  - GASTRITIS [None]
  - MALAISE [None]
  - UPPER RESPIRATORY TRACT INFECTION [None]
